FAERS Safety Report 21371150 (Version 2)
Quarter: 2022Q4

REPORT INFORMATION
  Report Type: Spontaneous
  Country: US (occurrence: US)
  Receive Date: 20220923
  Receipt Date: 20221227
  Transmission Date: 20230113
  Serious: Yes (Hospitalization)
  Sender: FDA-Public Use
  Company Number: US-PHARMING-PHAUS2022000650

PATIENT

DRUGS (2)
  1. RUCONEST [Suspect]
     Active Substance: HUMAN C1-ESTERASE INHIBITOR
     Indication: Hereditary angioedema
     Dosage: 4200 IU, EVERY 7-10 DAYS
     Route: 042
     Dates: start: 20180226
  2. RUCONEST [Suspect]
     Active Substance: HUMAN C1-ESTERASE INHIBITOR
     Dosage: 4200 IU, EVERY 7-10 DAYS
     Route: 042
     Dates: start: 20180226

REACTIONS (6)
  - Caesarean section [Unknown]
  - Injury [Unknown]
  - Weight increased [Unknown]
  - Maternal exposure during pregnancy [Unknown]
  - Intentional product use issue [Unknown]
  - Maternal exposure during breast feeding [Unknown]
